FAERS Safety Report 8397776-8 (Version None)
Quarter: 2012Q2

REPORT INFORMATION
  Report Type: 
  Country: None (occurrence: None)
  Receive Date: 20120323
  Receipt Date: 20110325
  Transmission Date: 20120825
  Serious: Yes (Hospitalization, Other)
  Sender: FDA-Public Use
  Company Number: 163-21880-11010898

PATIENT
  Age: 66 Year
  Sex: Male

DRUGS (9)
  1. DECADRON [Concomitant]
  2. ECOTRIN (ACETYLSALICYCLIC ACID) [Concomitant]
  3. METOPROLOL TARTRATE [Concomitant]
  4. SYMBICORT (SYMBICORT TURBUHALER ^DRACO^) [Concomitant]
  5. VELCADE [Concomitant]
  6. LIPITOR [Concomitant]
  7. REVLIMID [Suspect]
     Indication: MULTIPLE MYELOMA
     Dosage: 25 MG, DAILY 21 DAYS ON, 7 DAYS OFF, PO
     Route: 048
     Dates: start: 20101101
  8. ZETIA [Concomitant]
  9. PHENERGAN HCL [Concomitant]

REACTIONS (2)
  - PNEUMONIA [None]
  - BACTERIAL INFECTION [None]
